FAERS Safety Report 7366013-5 (Version None)
Quarter: 2011Q1

REPORT INFORMATION
  Report Type: 
  Country: None (occurrence: None)
  Receive Date: 20110322
  Receipt Date: 20100817
  Transmission Date: 20110831
  Serious: Yes (Hospitalization, Other)
  Sender: FDA-Public Use
  Company Number: US-BAYER-201011511NA

PATIENT
  Sex: Female
  Weight: 70.295 kg

DRUGS (4)
  1. IBUPROFEN [Concomitant]
  2. SARAFEM [Concomitant]
     Dosage: 20 MG, QD
  3. ALLEGRA [Concomitant]
  4. YASMIN [Suspect]
     Indication: PREMENSTRUAL SYNDROME
     Dosage: UNK
     Route: 048
     Dates: end: 20080115

REACTIONS (2)
  - DEEP VEIN THROMBOSIS [None]
  - THROMBOSIS [None]
